FAERS Safety Report 7603221-X (Version None)
Quarter: 2011Q3

REPORT INFORMATION
  Report Type: 
  Country: None (occurrence: None)
  Receive Date: 20110712
  Receipt Date: 20110708
  Transmission Date: 20111222
  Serious: Yes (Other)
  Sender: FDA-Public Use
  Company Number: US-PFIZER INC-2011154366

PATIENT
  Sex: Female

DRUGS (2)
  1. ZANAFLEX [Suspect]
     Dosage: UNK
     Dates: start: 20100101
  2. LYRICA [Suspect]
     Indication: PAIN
     Dosage: UNK

REACTIONS (5)
  - LOWER LIMB FRACTURE [None]
  - METABOLIC DISORDER [None]
  - CHRONIC FATIGUE SYNDROME [None]
  - NEUROPATHY PERIPHERAL [None]
  - WEIGHT INCREASED [None]
